FAERS Safety Report 5500618-9 (Version None)
Quarter: 2007Q4

REPORT INFORMATION
  Report Type: 
  Country: None (occurrence: None)
  Receive Date: 20071018
  Receipt Date: 20061128
  Transmission Date: 20080405
  Serious: Yes (Other)
  Sender: FDA-Public Use
  Company Number: 2006146768

PATIENT
  Age: 54 Year
  Sex: Male
  Weight: 111.1313 kg

DRUGS (6)
  1. NEURONTIN [Suspect]
     Indication: POLYNEUROPATHY ALCOHOLIC
  2. LYRICA [Suspect]
     Indication: POLYNEUROPATHY ALCOHOLIC
     Dosage: 300 MG (100 MG, 3 IN 1 D)
  3. CELEBREX [Concomitant]
  4. TAMSULOSIN HCL [Concomitant]
  5. ENALAPRIL MALEATE [Concomitant]
  6. MULTIVITAMIN [Concomitant]

REACTIONS (5)
  - ALANINE AMINOTRANSFERASE INCREASED [None]
  - ASPARTATE AMINOTRANSFERASE INCREASED [None]
  - DRUG INEFFECTIVE [None]
  - EOSINOPHIL COUNT INCREASED [None]
  - HYPERSENSITIVITY [None]
